FAERS Safety Report 23634023 (Version 1)
Quarter: 2024Q1

REPORT INFORMATION
  Report Type: Spontaneous
  Country: HU (occurrence: HU)
  Receive Date: 20240314
  Receipt Date: 20240314
  Transmission Date: 20240410
  Serious: Yes (Hospitalization, Other)
  Sender: FDA-Public Use
  Company Number: HU-002147023-NVSC2024HU051206

PATIENT
  Age: 54 Year
  Sex: Female

DRUGS (14)
  1. DABRAFENIB [Suspect]
     Active Substance: DABRAFENIB
     Indication: Product used for unknown indication
     Dosage: UNK
     Route: 065
     Dates: start: 20230503, end: 202309
  2. DABRAFENIB [Suspect]
     Active Substance: DABRAFENIB
     Dosage: UNK (75% DOSE REDUCED)
     Route: 065
     Dates: start: 202309
  3. DABRAFENIB [Suspect]
     Active Substance: DABRAFENIB
     Dosage: UNK (50% DOSE REDUCED)
     Route: 065
  4. TRAMETINIB [Suspect]
     Active Substance: TRAMETINIB
     Indication: Product used for unknown indication
     Dosage: UNK
     Route: 065
     Dates: start: 20230503, end: 202309
  5. TRAMETINIB [Suspect]
     Active Substance: TRAMETINIB
     Dosage: UNK (75% DOSE REDUCED)
     Route: 065
     Dates: start: 202309
  6. TRAMETINIB [Suspect]
     Active Substance: TRAMETINIB
     Dosage: UNK (50% DOSE REDUCED)
     Route: 065
  7. METFORMIN HYDROCHLORIDE\VILDAGLIPTIN [Suspect]
     Active Substance: METFORMIN HYDROCHLORIDE\VILDAGLIPTIN
     Indication: Diabetes mellitus
     Dosage: 50/1000 MG (FREQUENCY 2X)
     Route: 065
  8. LEVOTHYROXINE SODIUM [Concomitant]
     Active Substance: LEVOTHYROXINE SODIUM
     Indication: Product used for unknown indication
     Dosage: UNK
     Route: 065
  9. LIOTHYRONINE HYDROCHLORIDE [Concomitant]
     Active Substance: LIOTHYRONINE HYDROCHLORIDE
     Indication: Product used for unknown indication
     Dosage: 10 UG
     Route: 065
  10. CARVEDILOL [Concomitant]
     Active Substance: CARVEDILOL
     Indication: Product used for unknown indication
     Dosage: UNK
     Route: 065
  11. HYDROCHLOROTHIAZIDE\TELMISARTAN [Concomitant]
     Active Substance: HYDROCHLOROTHIAZIDE\TELMISARTAN
     Indication: Product used for unknown indication
     Dosage: UNK
     Route: 065
  12. ROSUVASTATIN [Concomitant]
     Active Substance: ROSUVASTATIN
     Indication: Product used for unknown indication
     Dosage: UNK
     Route: 065
  13. EUTHYROX [Concomitant]
     Active Substance: LEVOTHYROXINE SODIUM
     Indication: Product used for unknown indication
     Dosage: 175 UG (IN THE MORNING)
     Route: 065
  14. AMITRIPTYLINE HYDROCHLORIDE [Concomitant]
     Active Substance: AMITRIPTYLINE HYDROCHLORIDE
     Indication: Product used for unknown indication
     Dosage: UNK
     Route: 065

REACTIONS (14)
  - Polyneuropathy [Recovering/Resolving]
  - Hyperthyroidism [Recovering/Resolving]
  - Diabetes mellitus [Unknown]
  - Multifocal motor neuropathy [Unknown]
  - Carbohydrate metabolism disorder [Recovering/Resolving]
  - Tachycardia [Recovered/Resolved]
  - Pyrexia [Recovered/Resolved]
  - Pulmonary mass [Recovering/Resolving]
  - Joint swelling [Unknown]
  - Vomiting [Unknown]
  - Fatigue [Unknown]
  - C-reactive protein abnormal [Unknown]
  - Blood lactate dehydrogenase abnormal [Unknown]
  - Depression [Unknown]

NARRATIVE: CASE EVENT DATE: 20230101
